FAERS Safety Report 11248063 (Version 2)
Quarter: 2015Q2

REPORT INFORMATION
  Report Type: Report from Study
  Country: US (occurrence: None)
  Receive Date: 20150617
  Receipt Date: 20150617
  Transmission Date: 20150821
  Serious: No
  Sender: FDA-Public Use
  Company Number: 2014TASUS000545

PATIENT
  Age: 38 Year
  Sex: Female
  Weight: 48.1 kg

DRUGS (7)
  1. ATIVAN [Concomitant]
     Active Substance: LORAZEPAM
  2. VALIUM [Concomitant]
     Active Substance: DIAZEPAM
  3. HETLIOZ [Suspect]
     Active Substance: TASIMELTEON
     Indication: CIRCADIAN RHYTHM SLEEP DISORDER
     Route: 048
     Dates: start: 20140908
  4. ZYPREXA [Concomitant]
     Active Substance: OLANZAPINE
  5. TEGRETOL [Concomitant]
     Active Substance: CARBAMAZEPINE
  6. DEXILANT [Concomitant]
     Active Substance: DEXLANSOPRAZOLE
  7. AMBIEN [Concomitant]
     Active Substance: ZOLPIDEM TARTRATE

REACTIONS (1)
  - Drug ineffective [None]
